FAERS Safety Report 10428609 (Version 2)
Quarter: 2014Q4

REPORT INFORMATION
  Report Type: Spontaneous
  Country: RO (occurrence: RO)
  Receive Date: 20140903
  Receipt Date: 20141028
  Transmission Date: 20150528
  Serious: Yes (Death, Life-Threatening, Hospitalization, Other)
  Sender: FDA-Public Use
  Company Number: RO-B.I. PHARMACEUTICALS,INC./RIDGEFIELD-2014-BI-40736GD

PATIENT
  Age: 4 Month
  Sex: Female
  Weight: 4.3 kg

DRUGS (5)
  1. RETROVIR [Suspect]
     Active Substance: ZIDOVUDINE
     Indication: HIV INFECTION
     Dosage: 10 ML
     Route: 065
     Dates: start: 20100303
  2. EPIVIR [Suspect]
     Active Substance: LAMIVUDINE
     Indication: HIV INFECTION
     Dosage: 4 ML
     Route: 065
     Dates: start: 20100303
  3. PENICILLINE G [Concomitant]
     Route: 065
  4. VIRAMUNE [Suspect]
     Active Substance: NEVIRAPINE
     Indication: HIV INFECTION
     Dosage: 2 ML
     Route: 048
     Dates: start: 20100303
  5. GENTAMICINE [Concomitant]
     Active Substance: GENTAMICIN
     Route: 065

REACTIONS (15)
  - Cyanosis [Recovered/Resolved]
  - Cough [Unknown]
  - Diet refusal [Unknown]
  - Oral candidiasis [Unknown]
  - Sepsis [Fatal]
  - Hepatosplenomegaly [Unknown]
  - Systemic inflammatory response syndrome [Unknown]
  - Upper respiratory tract congestion [Unknown]
  - Pyrexia [Recovered/Resolved]
  - Interstitial lung disease [Unknown]
  - Respiratory failure [Fatal]
  - Malnutrition [Unknown]
  - Erythema [Unknown]
  - Tachycardia [Unknown]
  - HIV infection [Fatal]
